FAERS Safety Report 8575934 (Version 6)
Quarter: 2012Q4

REPORT INFORMATION
  Report Type: 
  Country: JP (occurrence: JP)
  Receive Date: 20120523
  Receipt Date: 20120928
  Transmission Date: 20130627
  Serious: Yes (Hospitalization, Other)
  Sender: FDA-Public Use
  Company Number: JP-JNJFOC-20120515285

PATIENT
  Age: 83 Year
  Sex: Female
  Weight: 50 kg

DRUGS (8)
  1. REMINYL [Suspect]
     Indication: DEMENTIA
     Route: 048
     Dates: start: 20120526
  2. REMINYL [Suspect]
     Indication: DEMENTIA
     Route: 048
     Dates: start: 20110715, end: 20120409
  3. REMINYL [Suspect]
     Indication: DEMENTIA
     Route: 048
     Dates: start: 20110617, end: 20110714
  4. LIPITOR [Concomitant]
     Indication: DYSLIPIDAEMIA
     Route: 048
     Dates: start: 20081117, end: 20090529
  5. LIPITOR [Concomitant]
     Indication: DYSLIPIDAEMIA
     Route: 048
     Dates: start: 20090529
  6. CONSTAN [Concomitant]
     Indication: RESTLESSNESS
     Route: 048
     Dates: start: 20081117
  7. GASMOTIN [Concomitant]
     Indication: CONSTIPATION
     Route: 048
     Dates: start: 20081117
  8. LAXOBERON [Concomitant]
     Indication: CONSTIPATION
     Route: 048
     Dates: start: 20081117

REACTIONS (4)
  - Nasopharyngitis [Recovered/Resolved]
  - Gastroenteritis [Recovered/Resolved]
  - Loss of consciousness [Recovered/Resolved]
  - Pneumonia [Recovered/Resolved]
